FAERS Safety Report 21822973 (Version 2)
Quarter: 2024Q1

REPORT INFORMATION
  Report Type: Spontaneous
  Country: US (occurrence: US)
  Receive Date: 20230105
  Receipt Date: 20240104
  Transmission Date: 20240409
  Serious: No
  Sender: FDA-Public Use
  Company Number: US-AMNEAL PHARMACEUTICALS-2022-AMRX-01821

PATIENT
  Age: 42 Year
  Sex: Female
  Weight: 63.5 kg

DRUGS (12)
  1. ACTIVELLA [Suspect]
     Active Substance: ESTRADIOL\NORETHINDRONE ACETATE
     Indication: Uterine leiomyoma
     Dosage: UNK, QD
     Route: 048
     Dates: start: 20190605, end: 20200730
  2. ELAGOLIX [Suspect]
     Active Substance: ELAGOLIX
     Indication: Uterine leiomyoma
     Dosage: UNK, QD
     Route: 048
     Dates: start: 20200730, end: 20220405
  3. VITAMIN B12 [Concomitant]
     Active Substance: CYANOCOBALAMIN
     Indication: General symptom
     Dosage: 1 TABLETS, QD
     Route: 048
     Dates: start: 20190619
  4. IBUPROFEN [Concomitant]
     Active Substance: IBUPROFEN
     Indication: Back pain
     Dosage: 400 MILLIGRAM, AS NEEDED
     Route: 048
     Dates: start: 1999
  5. ASCORBIC ACID [Concomitant]
     Active Substance: ASCORBIC ACID
     Indication: General symptom
     Dosage: 500 MILLIGRAM, QD
     Route: 048
     Dates: start: 20190619
  6. FERROUS SULFATE ANHYDROUS [Concomitant]
     Active Substance: FERROUS SULFATE ANHYDROUS
     Indication: Anaemia
     Dosage: 325 MILLIGRAM, TID
     Route: 048
     Dates: start: 20190605
  7. DOCUSATE SODIUM [Concomitant]
     Active Substance: DOCUSATE SODIUM
     Indication: Constipation
     Dosage: 100 MILLIGRAM, AS NEEDED
     Route: 048
     Dates: start: 20190605
  8. ALEVE [Concomitant]
     Active Substance: NAPROXEN SODIUM
     Indication: Headache
     Dosage: 220 MILLIGRAM, AS NEEDED
     Route: 048
     Dates: start: 2002
  9. VITAMIN D NOS [Concomitant]
     Active Substance: VITAMIN D NOS
     Indication: Vitamin D deficiency
     Dosage: 1000 INTERNATIONAL UNIT, QD
     Route: 048
     Dates: start: 20190801
  10. BAYER BACK AND BODY EXTRA STRENGTH [Concomitant]
     Active Substance: ASPIRIN\CAFFEINE
     Indication: Back pain
     Dosage: 500 MILLIGRAM, AS NEEDED
     Route: 048
     Dates: start: 20200216
  11. VITAMINS NOS [Concomitant]
     Active Substance: VITAMINS
     Indication: General symptom
     Dosage: 1 TBSP, QD
     Route: 048
     Dates: start: 20200506
  12. LEVOTHYROXINE [Concomitant]
     Active Substance: LEVOTHYROXINE
     Indication: Thyroid disorder
     Dosage: 50 MICROGRAM, QD
     Route: 048
     Dates: start: 20210114

REACTIONS (1)
  - Bone density decreased [Not Recovered/Not Resolved]

NARRATIVE: CASE EVENT DATE: 20220317
